FAERS Safety Report 4891089-4 (Version None)
Quarter: 2006Q1

REPORT INFORMATION
  Report Type: 
  Country: None (occurrence: None)
  Receive Date: 20060125
  Receipt Date: 20050520
  Transmission Date: 20060701
  Serious: Yes (Hospitalization, Other)
  Sender: FDA-Public Use
  Company Number: US-MERCK-0505USA02558

PATIENT
  Age: 69 Year
  Sex: Female
  Weight: 61 kg

DRUGS (9)
  1. VIOXX [Suspect]
     Indication: COSTOCHONDRITIS
     Route: 048
     Dates: start: 20000601, end: 20010725
  2. VIOXX [Suspect]
     Indication: SOFT TISSUE DISORDER
     Route: 048
     Dates: start: 20000601, end: 20010725
  3. ASPIRIN [Concomitant]
     Route: 065
  4. VERAPAMIL MSD LP [Concomitant]
     Route: 065
  5. LIPITOR [Concomitant]
     Route: 065
  6. FOSAMAX [Concomitant]
     Route: 065
  7. DIOVAN [Concomitant]
     Route: 048
  8. TYLENOL (CAPLET) [Concomitant]
     Route: 065
  9. PEPCID [Concomitant]
     Route: 065

REACTIONS (15)
  - ACCELERATED HYPERTENSION [None]
  - AORTIC VALVE STENOSIS [None]
  - CARDIAC MURMUR [None]
  - CAROTID ARTERY DISEASE [None]
  - CAROTID ARTERY STENOSIS [None]
  - GALLBLADDER DISORDER [None]
  - HEADACHE [None]
  - HYPOACUSIS [None]
  - INJURY [None]
  - INSOMNIA [None]
  - MYOCARDIAL INFARCTION [None]
  - NECK PAIN [None]
  - RENAL ARTERY STENOSIS [None]
  - STRESS [None]
  - TEMPOROMANDIBULAR JOINT SYNDROME [None]
